FAERS Safety Report 9740126 (Version 3)
Quarter: 2014Q1

REPORT INFORMATION
  Report Type: Spontaneous
  Country: US (occurrence: US)
  Receive Date: 20131209
  Receipt Date: 20140120
  Transmission Date: 20141002
  Serious: Yes (Other)
  Sender: FDA-Public Use
  Company Number: US-SA-2013SA127521

PATIENT
  Age: 60 Year
  Sex: Male
  Weight: 104.33 kg

DRUGS (7)
  1. ELIGARD [Suspect]
     Indication: PROSTATE CANCER
     Route: 058
  2. VITAMIN E [Concomitant]
  3. PROLIA [Concomitant]
  4. VITAMIN D [Concomitant]
  5. CALCIUM/VITAMIN D [Concomitant]
     Dosage: 400-1000-500
  6. ZITHROMAX [Concomitant]
     Dates: start: 201311
  7. MUCINEX [Concomitant]
     Indication: NASAL CONGESTION

REACTIONS (3)
  - Guillain-Barre syndrome [Recovered/Resolved]
  - Upper respiratory tract infection [Recovered/Resolved]
  - Asthenia [Recovered/Resolved]
